FAERS Safety Report 23289700 (Version 1)
Quarter: 2023Q4

REPORT INFORMATION
  Report Type: Spontaneous
  Country: US (occurrence: US)
  Receive Date: 20231212
  Receipt Date: 20231212
  Transmission Date: 20240109
  Serious: No
  Sender: FDA-Public Use
  Company Number: US-PFIZER INC-PV202300112521

PATIENT
  Age: 77 Year
  Sex: Female
  Weight: 54.785 kg

DRUGS (4)
  1. IBRANCE [Suspect]
     Active Substance: PALBOCICLIB
     Indication: Breast cancer metastatic
     Dosage: UNK
     Dates: start: 20220905
  2. IBRANCE [Suspect]
     Active Substance: PALBOCICLIB
     Dosage: DOSE REDUCED TO 100
     Route: 048
     Dates: start: 20221111
  3. IBRANCE [Suspect]
     Active Substance: PALBOCICLIB
     Dosage: FREQUENCY CHANGE TO 2 WEEKS ON/1OFF
     Route: 048
     Dates: start: 20230427
  4. FEMARA [Concomitant]
     Active Substance: LETROZOLE
     Dosage: 2.5 MG, DAILY
     Dates: start: 20220817

REACTIONS (13)
  - Off label use [Unknown]
  - Product dose confusion [Unknown]
  - White blood cell count decreased [Unknown]
  - Red blood cell count decreased [Unknown]
  - Haemoglobin decreased [Unknown]
  - Mean cell volume increased [Unknown]
  - Mean cell haemoglobin increased [Unknown]
  - Red cell distribution width increased [Unknown]
  - Mean cell haemoglobin concentration decreased [Unknown]
  - Lymphocyte count decreased [Unknown]
  - Monocyte percentage increased [Unknown]
  - Blood albumin decreased [Unknown]
  - Anion gap decreased [Unknown]

NARRATIVE: CASE EVENT DATE: 20230427
